FAERS Safety Report 22638514 (Version 1)
Quarter: 2023Q2

REPORT INFORMATION
  Report Type: Spontaneous
  Country: AT (occurrence: AT)
  Receive Date: 20230626
  Receipt Date: 20230626
  Transmission Date: 20230721
  Serious: Yes (Hospitalization, Other)
  Sender: FDA-Public Use
  Company Number: None

PATIENT
  Age: 35 Year
  Sex: Female
  Weight: 62 kg

DRUGS (19)
  1. DOCETAXEL [Suspect]
     Active Substance: DOCETAXEL
     Indication: HER2 positive breast cancer
     Dosage: MOST RECENT DOSE PRIOR TO AE 15/NOV/2017
     Route: 042
     Dates: start: 20170621
  2. TRASTUZUMAB [Suspect]
     Active Substance: TRASTUZUMAB
     Indication: HER2 positive breast cancer
     Dosage: MOST RECENT DOSE PRIOR TO THE EVENT: 23/JUN/2022
     Route: 042
     Dates: start: 20170621, end: 20170621
  3. DENOSUMAB [Suspect]
     Active Substance: DENOSUMAB
     Indication: HER2 positive breast cancer
     Route: 058
     Dates: start: 20170621
  4. GOSERELIN [Suspect]
     Active Substance: GOSERELIN
     Indication: HER2 positive breast cancer
     Route: 058
     Dates: start: 20180108
  5. EXEMESTANE [Suspect]
     Active Substance: EXEMESTANE
     Indication: HER2 positive breast cancer
     Route: 048
     Dates: start: 20200120
  6. LAPATINIB [Suspect]
     Active Substance: LAPATINIB
     Indication: HER2 positive breast cancer
     Dosage: MOST RECENT DOSE PRIOR TO AE 09/JUL/2021
     Route: 048
     Dates: start: 20201028
  7. PERTUZUMAB [Suspect]
     Active Substance: PERTUZUMAB
     Indication: HER2 positive breast cancer
     Dosage: MOST RECENT DOSE PRIOR TO THE EVENT: 8/JAN/2028
     Route: 042
     Dates: start: 20170621, end: 20170621
  8. LETROZOLE [Suspect]
     Active Substance: LETROZOLE
     Indication: HER2 positive breast cancer
     Dosage: MOST RECENT DOSE PRIOR TO AE 20/JAN/2020
     Route: 048
     Dates: start: 20180108
  9. LEVETIRACETAM [Concomitant]
     Active Substance: LEVETIRACETAM
     Indication: Product used for unknown indication
     Dosage: ONGOING = CHECKED
     Route: 065
     Dates: start: 20200102
  10. CALCIUM CARBONATE\CHOLECALCIFEROL [Concomitant]
     Active Substance: CALCIUM CARBONATE\CHOLECALCIFEROL
     Indication: Product used for unknown indication
     Dosage: ONGOING = CHECKED
     Route: 065
     Dates: start: 20171025
  11. GOSERELIN [Concomitant]
     Active Substance: GOSERELIN
     Indication: Product used for unknown indication
     Dosage: ONGOING = CHECKED
     Route: 065
     Dates: start: 20180129
  12. AMOXICILLIN\CLAVULANATE POTASSIUM [Concomitant]
     Active Substance: AMOXICILLIN\CLAVULANATE POTASSIUM
     Indication: Pneumonia
     Dosage: ONGOING = NOT CHECKED
     Route: 065
     Dates: start: 20230508, end: 20230515
  13. ESOMEPRAZOLE [Concomitant]
     Active Substance: ESOMEPRAZOLE
     Indication: Product used for unknown indication
     Dosage: ONGOING = CHECKED
     Route: 065
     Dates: start: 20191230
  14. NOVALGIN (METAMIZOLE SODIUM) [Concomitant]
     Active Substance: METAMIZOLE SODIUM
     Indication: Product used for unknown indication
     Dosage: ONGOING = CHECKED
     Route: 065
     Dates: start: 20180515
  15. ESOMEPRAZOLE [Concomitant]
     Active Substance: ESOMEPRAZOLE
     Indication: Product used for unknown indication
     Dosage: ONGOING = CHECKED
     Route: 065
     Dates: start: 20170621
  16. UNASYN [Concomitant]
     Active Substance: AMPICILLIN SODIUM\SULBACTAM SODIUM
     Indication: Pneumonia
     Dosage: ONGOING = NOT CHECKED
     Route: 065
     Dates: start: 20230507, end: 20230508
  17. APREPITANT [Concomitant]
     Active Substance: APREPITANT
     Indication: Product used for unknown indication
     Dosage: ONGOING = CHECKED
     Route: 065
     Dates: start: 20210812
  18. LOPERAMIDE HYDROCHLORIDE [Concomitant]
     Active Substance: LOPERAMIDE HYDROCHLORIDE
     Indication: Product used for unknown indication
     Dosage: ONGOING = CHECKED
     Route: 065
     Dates: start: 20201028
  19. DEXAMETHASONE [Concomitant]
     Active Substance: DEXAMETHASONE
     Indication: Syncope
     Dosage: ONGOING = CHECKED
     Route: 065
     Dates: start: 20201111

REACTIONS (1)
  - Cataract operation [Recovered/Resolved]

NARRATIVE: CASE EVENT DATE: 20230511
